FAERS Safety Report 13943726 (Version 2)
Quarter: 2017Q4

REPORT INFORMATION
  Report Type: Report from Study
  Country: US (occurrence: US)
  Receive Date: 20170907
  Receipt Date: 20171013
  Transmission Date: 20180320
  Serious: Yes (Hospitalization)
  Sender: FDA-Public Use
  Company Number: US-GILEAD-2017-0292245

PATIENT
  Age: 71 Year
  Sex: Female

DRUGS (1)
  1. AMBRISENTAN [Suspect]
     Active Substance: AMBRISENTAN
     Indication: PRODUCT USED FOR UNKNOWN INDICATION
     Dosage: 10 MG, QD
     Route: 065

REACTIONS (7)
  - Dizziness [Unknown]
  - Early satiety [Unknown]
  - Dyspnoea [Unknown]
  - Micturition disorder [Unknown]
  - Dizziness postural [Unknown]
  - Dizziness [Not Recovered/Not Resolved]
  - Intentional dose omission [Unknown]
